FAERS Safety Report 9373235 (Version 1)
Quarter: 2013Q2

REPORT INFORMATION
  Report Type: Spontaneous
  Country: FR (occurrence: FR)
  Receive Date: 20130627
  Receipt Date: 20130627
  Transmission Date: 20140414
  Serious: Yes (Hospitalization, Other)
  Sender: FDA-Public Use
  Company Number: FR-ABBOTT-13P-056-1111050-00

PATIENT
  Age: 43 Year
  Sex: Male

DRUGS (3)
  1. CYCLOSPORINE [Suspect]
     Indication: IMMUNOSUPPRESSANT DRUG THERAPY
  2. CORTICOSTEROIDS [Suspect]
     Indication: IMMUNOSUPPRESSANT DRUG THERAPY
  3. CORTICOSTEROIDS [Suspect]

REACTIONS (2)
  - Human herpesvirus 8 infection [Unknown]
  - Human herpesvirus 8 infection [Unknown]
